FAERS Safety Report 13401378 (Version 1)
Quarter: 2017Q2

REPORT INFORMATION
  Report Type: Spontaneous
  Country: FR (occurrence: FR)
  Receive Date: 20170404
  Receipt Date: 20170404
  Transmission Date: 20170830
  Serious: Yes (Hospitalization)
  Sender: FDA-Public Use
  Company Number: FR-TEVA-756069ROM

PATIENT
  Age: 18 Year
  Sex: Female

DRUGS (1)
  1. LEELOO 0.1 MG/0.02 MG [Suspect]
     Active Substance: ETHINYL ESTRADIOL\LEVONORGESTREL
     Indication: ORAL CONTRACEPTION
     Dosage: 1 DOSAGE FORMS DAILY; 1 DOSAGE FORM= 0.02 MG ETHINYLESTRADIOL + 0.1 LEVONORGESTREL
     Route: 048
     Dates: start: 20140101, end: 20170206

REACTIONS (3)
  - Paraesthesia [Recovered/Resolved]
  - Transient ischaemic attack [Recovered/Resolved]
  - Language disorder [Recovered/Resolved]

NARRATIVE: CASE EVENT DATE: 20170126
